FAERS Safety Report 7294783-3 (Version None)
Quarter: 2011Q1

REPORT INFORMATION
  Report Type: 
  Country: None (occurrence: None)
  Receive Date: 20110216
  Receipt Date: 20110208
  Transmission Date: 20110831
  Serious: Yes (Life-Threatening, Hospitalization, Other)
  Sender: FDA-Public Use
  Company Number: US-ASTELLAS-2011US000143

PATIENT

DRUGS (17)
  1. VITAMIN B COMP [Concomitant]
     Indication: PRODUCT USED FOR UNKNOWN INDICATION
     Dosage: 1 DF, UID/QD
     Route: 048
  2. PROGRAF [Suspect]
     Indication: HEART TRANSPLANT
     Dosage: 2.5 MG, UID/QD
     Route: 048
     Dates: start: 20040220, end: 20101030
  3. CARVEDILOL [Concomitant]
     Indication: HEART RATE
     Dosage: 12.5 MG, BID
     Route: 048
  4. PRAVASTATIN [Concomitant]
     Indication: CARDIAC DISORDER
     Dosage: 80 MG, UID/QD
     Route: 048
     Dates: start: 20040220
  5. LOVAZA [Concomitant]
     Indication: CARDIAC DISORDER
     Dosage: 2 DF, UID/QD
     Route: 048
  6. PROGRAF [Suspect]
     Dosage: 1 MG, BID
     Route: 048
     Dates: start: 20101031
  7. PLAVIX [Concomitant]
     Indication: ANTICOAGULANT THERAPY
     Dosage: 75 MG, UID/QD
     Route: 048
  8. DILTIAZEM [Concomitant]
     Indication: PRODUCT USED FOR UNKNOWN INDICATION
     Dosage: 180 MG, UID/QD
     Route: 048
  9. ASERINE [Concomitant]
     Indication: ANTICOAGULANT THERAPY
     Dosage: 325 MG, UID/QD
     Route: 048
     Dates: start: 20040220
  10. ASPIRIN [Concomitant]
     Indication: PRODUCT USED FOR UNKNOWN INDICATION
     Dosage: 325 MG, UID/QD
     Route: 048
  11. DEMADEX [Concomitant]
     Indication: DIURETIC THERAPY
     Dosage: 40 MG TWICE DAILY
     Route: 048
  12. MATERNITY [Concomitant]
     Indication: PRODUCT USED FOR UNKNOWN INDICATION
     Dosage: 1 DF, UID/QD
     Route: 048
  13. CITRICAL [Concomitant]
     Indication: BLOOD CALCIUM
     Dosage: 2 DF, UID/QD
     Route: 048
     Dates: start: 20040220
  14. PRAVACHOL [Concomitant]
     Indication: PRODUCT USED FOR UNKNOWN INDICATION
     Dosage: 80 MG, UID/QD
     Route: 048
  15. IMURAN [Concomitant]
     Indication: CARDIAC DISORDER
     Dosage: 50 MG, UID/QD
     Route: 048
     Dates: start: 20040220
  16. PREDNISONE [Concomitant]
     Indication: HEART TRANSPLANT
     Dosage: 5 MG, UID/QD
     Route: 048
     Dates: start: 20040220
  17. METOPROLOL SUCCINATE [Concomitant]
     Indication: PRODUCT USED FOR UNKNOWN INDICATION
     Dosage: 25 MG, UID/QD
     Route: 048

REACTIONS (8)
  - CARDIAC FAILURE CONGESTIVE [None]
  - CORONARY ARTERY DISEASE [None]
  - CARDIAC ARREST [None]
  - RENAL FAILURE CHRONIC [None]
  - RENAL FAILURE ACUTE [None]
  - PULMONARY HAEMORRHAGE [None]
  - CARDIOGENIC SHOCK [None]
  - ESCHERICHIA URINARY TRACT INFECTION [None]
